FAERS Safety Report 5980601-X (Version None)
Quarter: 2008Q4

REPORT INFORMATION
  Report Type: 
  Country: None (occurrence: None)
  Receive Date: 20081205
  Receipt Date: 20080207
  Transmission Date: 20090506
  Serious: No
  Sender: FDA-Public Use
  Company Number: A0707992A

PATIENT
  Age: 45 Year
  Sex: Female

DRUGS (3)
  1. COMMIT [Suspect]
     Dates: start: 20080101, end: 20080114
  2. NICORETTE [Suspect]
     Dates: start: 20080120, end: 20080120
  3. CHANTIX [Concomitant]

REACTIONS (3)
  - GLOSSODYNIA [None]
  - NAUSEA [None]
  - VOMITING [None]
